FAERS Safety Report 15989340 (Version 3)
Quarter: 2019Q4

REPORT INFORMATION
  Report Type: Spontaneous
  Country: US (occurrence: US)
  Receive Date: 20190221
  Receipt Date: 20191014
  Transmission Date: 20200122
  Serious: No
  Sender: FDA-Public Use
  Company Number: US-PFIZER INC-2019069795

PATIENT
  Age: 68 Year
  Sex: Female

DRUGS (22)
  1. CHERATUSSIN AC [Suspect]
     Active Substance: CODEINE PHOSPHATE\GUAIFENESIN
     Dosage: UNK
  2. LISINOPRIL. [Suspect]
     Active Substance: LISINOPRIL
     Dosage: UNK
  3. PIROXICAM. [Suspect]
     Active Substance: PIROXICAM
     Dosage: UNK
  4. CIPRO [Suspect]
     Active Substance: CIPROFLOXACIN HYDROCHLORIDE
     Dosage: UNK
  5. CODEINE [Suspect]
     Active Substance: CODEINE
     Dosage: UNK
  6. DARVOCET [Suspect]
     Active Substance: ACETAMINOPHEN\PROPOXYPHENE HYDROCHLORIDE
     Dosage: UNK
  7. SULFUR. [Suspect]
     Active Substance: SULFUR
     Dosage: UNK
  8. BRILINTA [Suspect]
     Active Substance: TICAGRELOR
     Dosage: UNK
  9. OXYCODONE [Suspect]
     Active Substance: OXYCODONE
     Dosage: UNK
  10. SELDANE [Suspect]
     Active Substance: TERFENADINE
     Dosage: UNK
  11. BENADRYL [Suspect]
     Active Substance: DIPHENHYDRAMINE HYDROCHLORIDE
     Dosage: UNK
  12. CALCIUM [Suspect]
     Active Substance: CALCIUM
     Dosage: UNK
  13. PENICILLIN [BENZYLPENICILLIN] [Suspect]
     Active Substance: PENICILLIN G
     Dosage: UNK
  14. PERCOCET [OXYCODONE HYDROCHLORIDE;OXYCODONE TEREPHTHALATE;PARACETAMOL] [Suspect]
     Active Substance: ACETAMINOPHEN\OXYCODONE HYDROCHLORIDE\OXYCODONE TEREPHTHALATE
     Dosage: UNK
  15. VANCOMYCIN HCL [Suspect]
     Active Substance: VANCOMYCIN HYDROCHLORIDE
     Dosage: UNK
  16. TYLENOL WITH CODEINE [Suspect]
     Active Substance: ACETAMINOPHEN\CODEINE PHOSPHATE
     Dosage: UNK
  17. ERYTHROMYCIN. [Suspect]
     Active Substance: ERYTHROMYCIN
     Dosage: UNK
  18. LIDOCAINE HCL [Suspect]
     Active Substance: LIDOCAINE HYDROCHLORIDE
     Dosage: UNK
  19. CEFALEXIN [Suspect]
     Active Substance: CEPHALEXIN
     Dosage: UNK
  20. PROPOXYPHENE. [Suspect]
     Active Substance: PROPOXYPHENE
     Dosage: UNK
  21. CLOBETASOL PROPIONATE. [Suspect]
     Active Substance: CLOBETASOL PROPIONATE
     Dosage: UNK
  22. HIBICLENS [Suspect]
     Active Substance: CHLORHEXIDINE GLUCONATE
     Dosage: UNK

REACTIONS (1)
  - Drug hypersensitivity [Unknown]
